FAERS Safety Report 19136650 (Version 5)
Quarter: 2021Q4

REPORT INFORMATION
  Report Type: Spontaneous
  Country: PL (occurrence: PL)
  Receive Date: 20210415
  Receipt Date: 20211216
  Transmission Date: 20220303
  Serious: Yes (Disabling, Other)
  Sender: FDA-Public Use
  Company Number: PL-ZENTIVA-2021-ZT-000789

PATIENT
  Age: 57 Year
  Sex: Male

DRUGS (3)
  1. IMATINIB [Suspect]
     Active Substance: IMATINIB
     Indication: Philadelphia positive chronic myeloid leukaemia
     Dosage: 400 MILLIGRAM, ONCE A DAY
     Route: 065
  2. NILOTINIB [Concomitant]
     Active Substance: NILOTINIB
     Indication: Product used for unknown indication
     Dosage: 400 MILLIGRAM, TWO TIMES A DAY
     Route: 065
  3. NILOTINIB [Concomitant]
     Active Substance: NILOTINIB
     Dosage: 600 MILLIGRAM, ONCE A DAY
     Route: 065

REACTIONS (8)
  - Rash erythematous [Recovered/Resolved]
  - Gravitational oedema [Recovered/Resolved]
  - Pruritus [Recovered/Resolved]
  - Rash papular [Recovered/Resolved]
  - Erythema [Recovered/Resolved]
  - Drug intolerance [Recovered/Resolved]
  - Abdominal discomfort [Recovered/Resolved]
  - Papule [Recovered/Resolved]

NARRATIVE: CASE EVENT DATE: 20130101
